FAERS Safety Report 9629240 (Version 1)
Quarter: 2013Q4

REPORT INFORMATION
  Report Type: Spontaneous
  Country: US (occurrence: US)
  Receive Date: 20131017
  Receipt Date: 20131017
  Transmission Date: 20140711
  Serious: No
  Sender: FDA-Public Use
  Company Number: US-ASTRAZENECA-2013SE69019

PATIENT
  Age: 36 Year
  Sex: Male

DRUGS (5)
  1. CRESTOR [Suspect]
     Route: 048
  2. INSULIN GLARGINE [Concomitant]
     Route: 048
  3. INSULIN ASPART [Concomitant]
     Route: 048
  4. VIAGRA [Concomitant]
     Route: 048
  5. PERCOCET [Concomitant]
     Route: 048

REACTIONS (11)
  - Anal abscess [Unknown]
  - Hypercholesterolaemia [Unknown]
  - Nail disorder [Unknown]
  - Hyperkeratosis [Unknown]
  - Rectal abscess [Unknown]
  - Blood pressure increased [Unknown]
  - Erectile dysfunction [Unknown]
  - Myalgia [Unknown]
  - Diabetes mellitus [Unknown]
  - Pain in extremity [Unknown]
  - Depression [Unknown]
